FAERS Safety Report 7105362-2 (Version None)
Quarter: 2010Q4

REPORT INFORMATION
  Report Type: 
  Country: None (occurrence: None)
  Receive Date: 20101116
  Receipt Date: 20101108
  Transmission Date: 20110411
  Serious: Yes (Other)
  Sender: FDA-Public Use
  Company Number: GB-ABBOTT-10P-167-0684597-00

PATIENT
  Sex: Female

DRUGS (2)
  1. HUMIRA [Suspect]
     Indication: PRODUCT USED FOR UNKNOWN INDICATION
  2. SPINAL ANESTHETIC [Concomitant]
     Indication: ANAESTHESIA
     Route: 024

REACTIONS (1)
  - RETAINED PLACENTA OR MEMBRANES [None]
